FAERS Safety Report 4404557-6 (Version None)
Quarter: 2004Q3

REPORT INFORMATION
  Report Type: 
  Country: None (occurrence: None)
  Receive Date: 20040722
  Receipt Date: 20040616
  Transmission Date: 20050211
  Serious: Yes (Hospitalization)
  Sender: FDA-Public Use
  Company Number: 200412381FR

PATIENT
  Age: 80 Year
  Sex: Male
  Weight: 77 kg

DRUGS (6)
  1. KETEK [Suspect]
     Indication: BRONCHITIS
     Route: 048
     Dates: start: 20040429
  2. SIMVASTATIN [Concomitant]
     Indication: HYPERCHOLESTEROLAEMIA
     Route: 048
     Dates: end: 20040504
  3. PRETERAX [Concomitant]
     Indication: HYPERTENSION
     Route: 048
     Dates: end: 20040422
  4. MEDIATENSYL [Concomitant]
     Indication: HYPERTENSION
     Route: 048
     Dates: start: 20040422
  5. AMOXICILLIN [Concomitant]
     Indication: URINARY TRACT INFECTION
     Route: 048
     Dates: start: 20040422
  6. LACTEOL [Concomitant]
     Indication: DIARRHOEA
     Dates: start: 20040427

REACTIONS (18)
  - ALPHA 2 GLOBULIN INCREASED [None]
  - ANOREXIA [None]
  - BLOOD PRESSURE SYSTOLIC INCREASED [None]
  - CANDIDIASIS [None]
  - DEHYDRATION [None]
  - DIARRHOEA [None]
  - HAEMATURIA [None]
  - HAEMOGLOBIN DECREASED [None]
  - HYPERGAMMAGLOBULINAEMIA [None]
  - HYPERSENSITIVITY [None]
  - LEUKOCYTURIA [None]
  - NEPHRITIS INTERSTITIAL [None]
  - PERTUSSIS [None]
  - PLATELET COUNT INCREASED [None]
  - RED BLOOD CELL SEDIMENTATION RATE INCREASED [None]
  - RENAL FAILURE [None]
  - URINARY TRACT INFECTION [None]
  - WEIGHT DECREASED [None]
